FAERS Safety Report 6721540-6 (Version None)
Quarter: 2010Q2

REPORT INFORMATION
  Report Type: 
  Country: None (occurrence: None)
  Receive Date: 20100512
  Receipt Date: 20100503
  Transmission Date: 20101027
  Serious: Yes (Disabling, Other)
  Sender: FDA-Public Use
  Company Number: CA-ASTRAZENECA-2010SE19928

PATIENT
  Age: 65 Year
  Sex: Female

DRUGS (4)
  1. XYLOCAINE [Suspect]
     Route: 051
  2. DEPO-MEDROL WITH LIDOCAINE [Suspect]
     Route: 051
  3. LYRICA [Concomitant]
  4. MOTRIN [Concomitant]

REACTIONS (12)
  - ASTHENIA [None]
  - BURSITIS [None]
  - DIZZINESS [None]
  - DRY EYE [None]
  - FEELING COLD [None]
  - HEADACHE [None]
  - MALAISE [None]
  - NAUSEA [None]
  - PAIN IN EXTREMITY [None]
  - PRURITUS GENERALISED [None]
  - TENDONITIS [None]
  - TREMOR [None]
